FAERS Safety Report 8614160-X (Version None)
Quarter: 2012Q3

REPORT INFORMATION
  Report Type: 
  Country: None (occurrence: None)
  Receive Date: 20120823
  Receipt Date: 20120814
  Transmission Date: 20120928
  Serious: Yes (Other)
  Sender: FDA-Public Use
  Company Number: US-JNJFOC-20120807716

PATIENT
  Sex: Female
  Weight: 61.24 kg

DRUGS (4)
  1. VITAMIN [Concomitant]
     Indication: NUTRITIONAL SUPPORT
     Route: 048
  2. CALCIUM [Concomitant]
     Indication: NUTRITIONAL SUPPORT
     Route: 048
  3. SIMPONI [Suspect]
     Indication: RHEUMATOID ARTHRITIS
     Route: 058
     Dates: start: 20100101, end: 20120101
  4. FOLIC ACID [Concomitant]
     Indication: NUTRITIONAL SUPPORT
     Route: 048

REACTIONS (4)
  - CHEST PAIN [None]
  - COUGH [None]
  - LUNG DISORDER [None]
  - MALAISE [None]
